FAERS Safety Report 7529442-2 (Version None)
Quarter: 2011Q2

REPORT INFORMATION
  Report Type: 
  Country: None (occurrence: None)
  Receive Date: 20110607
  Receipt Date: 20110601
  Transmission Date: 20111010
  Serious: Yes (Hospitalization)
  Sender: FDA-Public Use
  Company Number: US-EISAI INC-E2080-00395-SPO-US

PATIENT
  Age: 21 Year
  Sex: Male

DRUGS (1)
  1. BANZEL [Suspect]
     Indication: EPILEPSY
     Dosage: UNKNOWN
     Route: 048
     Dates: start: 20110101, end: 20110101

REACTIONS (3)
  - HYPOTENSION [None]
  - PNEUMONIA [None]
  - LETHARGY [None]
